FAERS Safety Report 7151332-8 (Version None)
Quarter: 2010Q4

REPORT INFORMATION
  Report Type: 
  Country: None (occurrence: None)
  Receive Date: 20101210
  Receipt Date: 20101202
  Transmission Date: 20110411
  Serious: Yes (Hospitalization, Other)
  Sender: FDA-Public Use
  Company Number: US-SANOFI-AVENTIS-2010SA074154

PATIENT
  Age: 60 Year
  Sex: Male

DRUGS (11)
  1. PLAVIX [Suspect]
     Route: 048
     Dates: end: 20100101
  2. PLAVIX [Suspect]
     Route: 048
     Dates: start: 20100101
  3. ASPIRIN [Suspect]
     Route: 048
  4. LOPRESSOR [Concomitant]
  5. PRAVASTATIN [Concomitant]
  6. VERAPAMIL [Concomitant]
  7. LASIX [Concomitant]
  8. SYNTHROID [Concomitant]
  9. HUMULIN R [Concomitant]
  10. ADVAIR DISKUS 100/50 [Concomitant]
  11. SPIRIVA [Concomitant]
     Dates: end: 20100101

REACTIONS (2)
  - BLOOD POTASSIUM INCREASED [None]
  - HAEMORRHOIDAL HAEMORRHAGE [None]
